FAERS Safety Report 4909174-7 (Version None)
Quarter: 2006Q1

REPORT INFORMATION
  Report Type: 
  Country: None (occurrence: None)
  Receive Date: 20060209
  Receipt Date: 20060209
  Transmission Date: 20060701
  Serious: Yes (Hospitalization)
  Sender: FDA-Public Use
  Company Number: None

PATIENT
  Age: 48 Year
  Sex: Female
  Weight: 57.1532 kg

DRUGS (4)
  1. QUINAPRIL 20 MG [Suspect]
     Indication: CARDIOMYOPATHY
     Dosage: 20 MG DAILY PO
     Route: 048
     Dates: start: 20041006, end: 20041011
  2. CARVEDILOL [Concomitant]
  3. EFAVIRENZ [Concomitant]
  4. COMBIVIR [Concomitant]

REACTIONS (1)
  - SWELLING FACE [None]
